FAERS Safety Report 6303655-X (Version None)
Quarter: 2009Q3

REPORT INFORMATION
  Report Type: 
  Country: None (occurrence: None)
  Receive Date: 20090810
  Receipt Date: 20090730
  Transmission Date: 20100115
  Serious: Yes (Death)
  Sender: FDA-Public Use
  Company Number: TW-BAXTER-2009BH012384

PATIENT
  Age: 71 Year
  Sex: Female

DRUGS (8)
  1. DIANEAL [Suspect]
     Indication: PERITONEAL DIALYSIS
     Route: 033
     Dates: start: 20090701
  2. DIANEAL [Suspect]
     Route: 033
     Dates: start: 20090701
  3. DIANEAL [Suspect]
     Route: 033
     Dates: start: 20090701
  4. DIANEAL [Suspect]
     Route: 033
     Dates: start: 20090701
  5. EXTRANEAL [Suspect]
     Indication: PERITONEAL DIALYSIS
     Route: 033
     Dates: start: 20090701
  6. EXTRANEAL [Suspect]
     Route: 033
     Dates: start: 20090701
  7. EXTRANEAL [Suspect]
     Route: 033
     Dates: start: 20090101
  8. DIANEAL [Suspect]
     Route: 033
     Dates: start: 20090101

REACTIONS (1)
  - SEPSIS [None]
